FAERS Safety Report 4413931-3 (Version None)
Quarter: 2004Q3

REPORT INFORMATION
  Report Type: 
  Country: None (occurrence: None)
  Receive Date: 20040803
  Receipt Date: 20040723
  Transmission Date: 20050211
  Serious: Yes (Hospitalization)
  Sender: FDA-Public Use
  Company Number: GB-ROCHE-375253

PATIENT
  Age: 73 Year
  Sex: Male
  Weight: 65 kg

DRUGS (6)
  1. CAPECITABINE [Suspect]
     Route: 048
     Dates: start: 20040601, end: 20040720
  2. GEMCITABINE [Suspect]
     Route: 042
     Dates: start: 20040601, end: 20040713
  3. METOCLOPRAMIDE [Concomitant]
     Route: 042
     Dates: start: 20040601, end: 20040713
  4. OMEPRAZOLE [Concomitant]
     Route: 048
     Dates: end: 20040720
  5. UNKNOWN DRUG [Concomitant]
     Dosage: ^NOVOMI^
     Route: 058
     Dates: end: 20040720
  6. ORAMORPH SR [Concomitant]
     Route: 048
     Dates: end: 20040721

REACTIONS (5)
  - DEHYDRATION [None]
  - INTESTINAL INFARCTION [None]
  - PALMAR-PLANTAR ERYTHRODYSAESTHESIA SYNDROME [None]
  - STOMATITIS [None]
  - URINARY RETENTION [None]
